FAERS Safety Report 23629362 (Version 1)
Quarter: 2024Q1

REPORT INFORMATION
  Report Type: Spontaneous
  Country: US (occurrence: US)
  Receive Date: 20240313
  Receipt Date: 20240313
  Transmission Date: 20240410
  Serious: Yes (Other)
  Sender: FDA-Public Use
  Company Number: US-VISTAPHARM-2023-US-042807

PATIENT
  Age: 38 Year
  Sex: Female
  Weight: 64.3 kg

DRUGS (10)
  1. PEGLOTICASE [Concomitant]
     Active Substance: PEGLOTICASE
     Dosage: 8 MG EVERY 2 WEEKS
  2. ENVARSUS XR [Concomitant]
     Active Substance: TACROLIMUS
     Dosage: 5 MG DAILY
  3. TRAZODONE [Concomitant]
     Active Substance: TRAZODONE HYDROCHLORIDE
     Dosage: 50 MG EVERY NIGHT
  4. AMLODIPINE [Concomitant]
     Active Substance: AMLODIPINE BESYLATE
  5. BELATACEPT [Concomitant]
     Active Substance: BELATACEPT
     Dosage: 5 MG/KG IV EVERY 4 WEEKS
  6. COREG [Concomitant]
     Active Substance: CARVEDILOL
     Dosage: 25 MG BID
  7. Flexaril [Concomitant]
     Dosage: 10 MG TID
  8. OMEPRAZOLE [Concomitant]
     Active Substance: OMEPRAZOLE
     Dosage: 40 MG DAILY
  9. PREDNISONE [Concomitant]
     Active Substance: PREDNISONE
     Dosage: 5 MG DAILY
  10. MYCOPHENOLATE MOFETIL [Suspect]
     Active Substance: MYCOPHENOLATE MOFETIL
     Indication: Renal transplant
     Dosage: 500 MG BID
     Route: 048
     Dates: start: 20170924, end: 20230918

REACTIONS (2)
  - Abortion spontaneous [Unknown]
  - Exposure during pregnancy [Recovered/Resolved]

NARRATIVE: CASE EVENT DATE: 20230814
